FAERS Safety Report 7368493-8 (Version None)
Quarter: 2011Q1

REPORT INFORMATION
  Report Type: 
  Country: None (occurrence: None)
  Receive Date: 20110323
  Receipt Date: 20110315
  Transmission Date: 20110831
  Serious: Yes (Hospitalization)
  Sender: FDA-Public Use
  Company Number: US-ASTELLAS-2011US001094

PATIENT
  Sex: Male
  Weight: 79 kg

DRUGS (1)
  1. PROGRAF [Suspect]
     Indication: LIVER TRANSPLANT
     Dosage: 10 MG, BID
     Route: 048
     Dates: start: 20100901

REACTIONS (3)
  - RASH [None]
  - SKIN LESION [None]
  - PRURITUS GENERALISED [None]
